FAERS Safety Report 5044580-4 (Version None)
Quarter: 2006Q2

REPORT INFORMATION
  Report Type: 
  Country: None (occurrence: None)
  Receive Date: 20060629
  Receipt Date: 20060619
  Transmission Date: 20061013
  Serious: Yes (Other)
  Sender: FDA-Public Use
  Company Number: L06-ITA-02573-06

PATIENT
  Age: 7 Year
  Sex: Male

DRUGS (3)
  1. CARBAMAZEPINE [Suspect]
     Indication: PARTIAL SEIZURES
  2. CLOBAZAM [Concomitant]
  3. VALPROIC ACID [Concomitant]

REACTIONS (4)
  - AGGRESSION [None]
  - PARTIAL SEIZURES [None]
  - PETIT MAL EPILEPSY [None]
  - SALIVARY HYPERSECRETION [None]
